FAERS Safety Report 15715623 (Version 2)
Quarter: 2019Q1

REPORT INFORMATION
  Report Type: Report from Study
  Country: FR (occurrence: FR)
  Receive Date: 20181212
  Receipt Date: 20190321
  Transmission Date: 20190417
  Serious: Yes (Death, Hospitalization, Other)
  Sender: FDA-Public Use
  Company Number: FR-ELI_LILLY_AND_COMPANY-FR201712011863

PATIENT
  Age: 41 Year
  Sex: Male
  Weight: 55 kg

DRUGS (32)
  1. SUTENT [Suspect]
     Active Substance: SUNITINIB MALATE
     Dosage: 37.5 MG, DAILY
     Route: 065
     Dates: start: 20150827, end: 20150831
  2. PHLOROGLUCINOL [Concomitant]
     Active Substance: PHLOROGLUCINOL
     Indication: ABDOMINAL DISTENSION
     Dosage: UNK
     Route: 048
     Dates: start: 20160729
  3. SOLUPRED [PREDNISOLONE] [Concomitant]
     Active Substance: PREDNISOLONE
     Indication: ABDOMINAL PAIN
     Dosage: UNK
     Route: 048
     Dates: start: 20160920, end: 20160923
  4. METEOXANE [PHLOROGLUCINOL;SIMETICONE] [Concomitant]
     Indication: ABDOMINAL DISTENSION
     Dosage: UNK
     Route: 048
     Dates: start: 20160729
  5. SOMATULINE [LANREOTIDE] [Suspect]
     Active Substance: LANREOTIDE
     Indication: PANCREATIC NEUROENDOCRINE TUMOUR
     Dosage: 120 MG, EVERY 28 DAYS
     Route: 065
     Dates: start: 20160810, end: 20160907
  6. SOLU-MEDROL [Concomitant]
     Active Substance: METHYLPREDNISOLONE SODIUM SUCCINATE
     Dosage: UNK
     Route: 048
     Dates: start: 20161004, end: 20161005
  7. INIPOMP [Concomitant]
     Active Substance: PANTOPRAZOLE SODIUM
     Dosage: UNK
     Route: 048
  8. OXYNORM [Concomitant]
     Active Substance: OXYCODONE HYDROCHLORIDE
     Dosage: UNK
     Route: 048
     Dates: start: 20160916, end: 20161004
  9. PREDNISOLONE. [Concomitant]
     Active Substance: PREDNISOLONE
     Indication: ABDOMINAL PAIN
     Dosage: UNK
     Route: 048
     Dates: start: 20160920, end: 20160923
  10. TARDYFERON [Concomitant]
     Active Substance: FERROUS SULFATE
     Indication: IRON DEFICIENCY
     Dosage: UNK
     Dates: start: 20160630, end: 20160729
  11. GEMCITABINE HYDROCHLORIDE. [Suspect]
     Active Substance: GEMCITABINE HYDROCHLORIDE
     Indication: PANCREATIC NEUROENDOCRINE TUMOUR
     Dosage: 500 MG/M2, CYCLICAL
     Route: 065
     Dates: start: 20151105, end: 20160218
  12. SUTENT [Suspect]
     Active Substance: SUNITINIB MALATE
     Indication: PANCREATIC NEUROENDOCRINE TUMOUR
     Dosage: 12.5 MG, DAILY
     Route: 065
     Dates: start: 20150101, end: 20150101
  13. FLUOROURACIL. [Suspect]
     Active Substance: FLUOROURACIL
     Dosage: 400 MG/M2, SINGLE
     Route: 065
     Dates: start: 20160914
  14. INIPOMP [Concomitant]
     Active Substance: PANTOPRAZOLE SODIUM
     Indication: REFLUX GASTRITIS
     Dosage: UNK
     Route: 048
     Dates: start: 20160616
  15. OXALIPLATIN. [Suspect]
     Active Substance: OXALIPLATIN
     Indication: PANCREATIC NEUROENDOCRINE TUMOUR
     Dosage: 75 MG/M2, EVERY 14 DAYS
     Route: 065
     Dates: start: 20151105, end: 20160218
  16. INNOHEP [Concomitant]
     Active Substance: TINZAPARIN SODIUM
     Indication: PROPHYLAXIS
     Dosage: UNK
     Route: 058
     Dates: start: 20160915
  17. ELVORINE [Suspect]
     Active Substance: LEUCOVORIN CALCIUM
     Indication: PANCREATIC NEUROENDOCRINE TUMOUR
     Dosage: UNK UNK, UNKNOWN
     Route: 065
     Dates: start: 20160914
  18. SOLU-MEDROL [Concomitant]
     Active Substance: METHYLPREDNISOLONE SODIUM SUCCINATE
     Indication: ABDOMINAL PAIN
     Dosage: UNK
     Route: 048
     Dates: start: 20160920, end: 20160920
  19. TRIMEBUTINE [Concomitant]
     Active Substance: TRIMEBUTINE
     Indication: ABDOMINAL DISTENSION
     Dosage: UNK
     Route: 048
     Dates: start: 20160902
  20. GEMCITABINE HYDROCHLORIDE. [Suspect]
     Active Substance: GEMCITABINE HYDROCHLORIDE
     Dosage: 500 MG/M2, CYCLICAL
     Route: 065
     Dates: start: 20160616
  21. FLUOROURACIL. [Suspect]
     Active Substance: FLUOROURACIL
     Indication: PANCREATIC NEUROENDOCRINE TUMOUR
     Dosage: 2400 MG/M2, SINGLE
     Route: 065
     Dates: start: 20160914, end: 20160914
  22. IRINOTECAN HYDROCHLORIDE. [Suspect]
     Active Substance: IRINOTECAN HYDROCHLORIDE
     Indication: PANCREATIC NEUROENDOCRINE TUMOUR
     Dosage: 180 MG/M2, SINGLE
     Route: 065
     Dates: start: 20160914
  23. OXYNORM [Concomitant]
     Active Substance: OXYCODONE HYDROCHLORIDE
     Indication: ABDOMINAL PAIN
     Dosage: UNK
     Route: 048
     Dates: start: 201510
  24. INNOHEP [Concomitant]
     Active Substance: TINZAPARIN SODIUM
     Dosage: UNK
     Route: 058
  25. DUROGESIC [Concomitant]
     Active Substance: FENTANYL
     Indication: ABDOMINAL PAIN
     Dosage: UNK
     Route: 003
     Dates: start: 201510
  26. DEBRIDAT [TRIMEBUTINE] [Concomitant]
     Indication: ABDOMINAL DISTENSION
     Dosage: UNK
     Dates: start: 20160902
  27. SUTENT [Suspect]
     Active Substance: SUNITINIB MALATE
     Dosage: 12.5 MG, DAILY
     Route: 065
     Dates: start: 20150910, end: 20150918
  28. SUTENT [Suspect]
     Active Substance: SUNITINIB MALATE
     Dosage: 25 MG, DAILY
     Route: 065
     Dates: start: 20150919, end: 20151023
  29. OXALIPLATIN. [Suspect]
     Active Substance: OXALIPLATIN
     Dosage: 75 MG/M2, CYCLICAL
     Route: 065
     Dates: start: 20160616
  30. ELVORINE [Suspect]
     Active Substance: LEUCOVORIN CALCIUM
     Dosage: 200 MG/M2, UNKNOWN
     Route: 065
  31. DUROGESIC [Concomitant]
     Active Substance: FENTANYL
     Dosage: UNK
     Route: 003
     Dates: start: 20160922, end: 20161004
  32. AMOBARBITAL [Concomitant]
     Active Substance: AMOBARBITAL
     Indication: ABDOMINAL DISTENSION
     Dosage: UNK
     Route: 048

REACTIONS (12)
  - Malignant neoplasm progression [Fatal]
  - Asthenia [Fatal]
  - Psychomotor skills impaired [Fatal]
  - Abdominal pain [Fatal]
  - Dysaesthesia [Fatal]
  - Decreased appetite [Fatal]
  - Asthenia [Fatal]
  - Dyspnoea [Fatal]
  - Hypoaesthesia [Fatal]
  - Decreased appetite [Fatal]
  - Pain [Fatal]
  - Hepatic pain [Fatal]

NARRATIVE: CASE EVENT DATE: 20151112
